FAERS Safety Report 8052474-5 (Version None)
Quarter: 2012Q1

REPORT INFORMATION
  Report Type: 
  Country: None (occurrence: None)
  Receive Date: 20120118
  Receipt Date: 20120112
  Transmission Date: 20120608
  Serious: Yes (Hospitalization, Other)
  Sender: FDA-Public Use
  Company Number: SE-PFIZER INC-2011306446

PATIENT
  Age: 29 Year
  Sex: Male
  Weight: 90 kg

DRUGS (8)
  1. LYRICA [Suspect]
     Indication: GENERALISED ANXIETY DISORDER
     Dosage: 400 MG, DAILY
  2. LYRICA [Suspect]
     Dosage: 300MG, DAILY
  3. ZYPREXA [Concomitant]
     Dosage: 5 MG, AT NIGHT
  4. TREO [Concomitant]
     Dosage: 4 TABLETS DAILY
  5. ESCITALOPRAM [Concomitant]
     Dosage: 20 MG, DAILY
  6. LYRICA [Suspect]
     Dosage: 1500MG, DAILY
     Dates: start: 20090101
  7. OXAZEPAM [Concomitant]
     Dosage: 10 MG, AS NEEDED
  8. BUPROPION HYDROCHLORIDE [Concomitant]
     Dosage: 150 MG, DAILY

REACTIONS (6)
  - PANIC ATTACK [None]
  - DRUG DEPENDENCE [None]
  - BURNING SENSATION [None]
  - DEREALISATION [None]
  - DRUG WITHDRAWAL SYNDROME [None]
  - ANXIETY [None]
